FAERS Safety Report 20790465 (Version 6)
Quarter: 2022Q4

REPORT INFORMATION
  Report Type: Report from Study
  Country: US (occurrence: US)
  Receive Date: 20220505
  Receipt Date: 20221021
  Transmission Date: 20230113
  Serious: Yes (Death, Life-Threatening, Hospitalization, Disabling, Other)
  Sender: FDA-Public Use
  Company Number: US-INCYTE CORPORATION-2021IN002042

PATIENT

DRUGS (40)
  1. JAKAFI [Suspect]
     Active Substance: RUXOLITINIB
     Indication: Myelofibrosis
     Dosage: 20 MILLIGRAM, BID
     Route: 048
     Dates: start: 2012
  2. JAKAFI [Suspect]
     Active Substance: RUXOLITINIB
     Dosage: 20 MILLIGRAM, QD
     Route: 048
     Dates: start: 20150812, end: 20210730
  3. DILTIAZEM [Concomitant]
     Active Substance: DILTIAZEM
     Indication: Hypertension
     Dosage: 180 MILLIGRAM, QD
     Route: 048
     Dates: start: 20160406
  4. DILTIAZEM [Concomitant]
     Active Substance: DILTIAZEM
     Dosage: 180 MILLIGRAM, QD
     Route: 048
     Dates: start: 20160810
  5. OXYBUTYNIN [Concomitant]
     Active Substance: OXYBUTYNIN
     Indication: Neurogenic bladder
     Dosage: 15 MILLIGRAM, QD
     Route: 048
     Dates: start: 2016
  6. WARFARIN [Concomitant]
     Active Substance: WARFARIN
     Indication: Prophylaxis
     Dosage: 10/7.5 MILLIGRAM, 10QMF, 7,5 QTUEWTHSASUN
     Route: 048
     Dates: start: 200006
  7. WARFARIN [Concomitant]
     Active Substance: WARFARIN
     Indication: Cerebrovascular accident
     Dosage: 10/7.5 MILLIGRAM
     Route: 048
     Dates: start: 20171113
  8. SIMVASTATIN [Concomitant]
     Active Substance: SIMVASTATIN
     Indication: Hyperlipidaemia
     Dosage: 10 MILLIGRAM, QD
     Route: 048
     Dates: start: 20171113
  9. SIMVASTATIN [Concomitant]
     Active Substance: SIMVASTATIN
     Dosage: 10 MILLIGRAM, QD
     Route: 048
     Dates: start: 20170728
  10. CALCIUM [Concomitant]
     Active Substance: CALCIUM
     Indication: Osteoporosis
     Dosage: 600 MILLIGRAM, BID
     Route: 048
     Dates: start: 2002
  11. CALCIUM [Concomitant]
     Active Substance: CALCIUM
     Dosage: 600 MILLIGRAM, BID
     Route: 048
     Dates: start: 20101118
  12. OXYCODONE [Concomitant]
     Active Substance: OXYCODONE
     Indication: Fracture pain
     Dosage: 15 MILLIGRAM
     Route: 048
     Dates: start: 20180526, end: 20180527
  13. OXYCODONE [Concomitant]
     Active Substance: OXYCODONE
     Indication: Pain
     Dosage: 5 MILLIGRAM, PRN
     Route: 048
     Dates: start: 20210511
  14. NEURONTIN [Concomitant]
     Active Substance: GABAPENTIN
     Indication: Pain
     Dosage: 100 MILLIGRAM, QD
     Route: 048
     Dates: start: 20180526, end: 20180527
  15. NEURONTIN [Concomitant]
     Active Substance: GABAPENTIN
     Dosage: 300 MILLIGRAM
     Route: 048
     Dates: start: 20180525
  16. NALOXONE [Concomitant]
     Active Substance: NALOXONE
     Indication: Respiratory failure
     Dosage: 0.04 MILLIGRAM, 4 TIMES A DAY
     Route: 042
     Dates: start: 20180527, end: 20180527
  17. DILAUDID [Concomitant]
     Active Substance: HYDROMORPHONE HYDROCHLORIDE
     Indication: Pain
     Dosage: 1 MILLIGRAM, BID
     Route: 042
     Dates: start: 20180525, end: 20180525
  18. TYLENOL [Concomitant]
     Active Substance: ACETAMINOPHEN
     Indication: Pain
     Dosage: 1 GRAM, 4 TIME A DAY/PRN
     Route: 048
     Dates: start: 20180526, end: 20180530
  19. TYLENOL [Concomitant]
     Active Substance: ACETAMINOPHEN
     Dosage: 1000 MILLIGRAM, BID
     Route: 048
     Dates: start: 20100720
  20. CEFTRIAXONE [Concomitant]
     Active Substance: CEFTRIAXONE
     Indication: Skin ulcer
     Dosage: 1 GRAM, QD
     Route: 042
     Dates: start: 20181119, end: 20181231
  21. CEFTRIAXONE [Concomitant]
     Active Substance: CEFTRIAXONE
     Indication: Cellulitis
  22. CEFTRIAXONE [Concomitant]
     Active Substance: CEFTRIAXONE
     Indication: Osteomyelitis
  23. BACTRIM [Concomitant]
     Active Substance: SULFAMETHOXAZOLE\TRIMETHOPRIM
     Indication: Skin ulcer
     Dosage: 1 TABLET, BID
     Route: 048
     Dates: start: 20181119, end: 20181231
  24. BACTRIM [Concomitant]
     Active Substance: SULFAMETHOXAZOLE\TRIMETHOPRIM
     Indication: Cellulitis
  25. BACTRIM [Concomitant]
     Active Substance: SULFAMETHOXAZOLE\TRIMETHOPRIM
     Indication: Osteomyelitis
  26. ASPIRIN [Concomitant]
     Active Substance: ASPIRIN
     Indication: Thrombocytopenia
     Dosage: 162 MILLIGRAM, QD
     Route: 048
     Dates: start: 20121221, end: 20210730
  27. COLACE [Concomitant]
     Active Substance: DOCUSATE SODIUM
     Indication: Constipation
     Dosage: 250 MILLIGRAM, BID
     Route: 048
     Dates: start: 20100720, end: 20210730
  28. SENNA LEAF [Concomitant]
     Active Substance: SENNA LEAF
     Indication: Constipation
     Dosage: 8.6 MILLIGRAM, QD
     Route: 048
     Dates: start: 20100720, end: 20210730
  29. POLYVINYL ALCOHOL [Concomitant]
     Active Substance: POLYVINYL ALCOHOL
     Indication: Dry eye
     Dosage: 1.4 PERCENT, TID
     Route: 047
     Dates: start: 20190606, end: 20210730
  30. CHOLESTYRAMINE [Concomitant]
     Active Substance: CHOLESTYRAMINE
     Indication: Product used for unknown indication
     Dosage: 4 GRAM
     Route: 048
     Dates: start: 20201002
  31. LEVSIN [Concomitant]
     Active Substance: HYOSCYAMINE SULFATE
     Indication: Dry mouth
     Dosage: 0.125 MILLIGRAM, PRN
     Route: 060
     Dates: start: 20210511
  32. ATIVAN [Concomitant]
     Active Substance: LORAZEPAM
     Indication: Anxiety
     Dosage: 0.5 MILLIGRAM, PRN
     Route: 048
     Dates: start: 20210511
  33. MORPHINE [Concomitant]
     Active Substance: MORPHINE
     Indication: Pain
     Dosage: 15 MILLIGRAM, PRN
     Route: 048
     Dates: start: 20210511
  34. AMOXICILLIN [Concomitant]
     Active Substance: AMOXICILLIN
     Indication: Gastroduodenal ulcer
     Dosage: 500 MILLIGRAM, BID
     Route: 048
     Dates: start: 20210511
  35. CEFUROXIME [Concomitant]
     Active Substance: CEFUROXIME
     Indication: Gastroduodenal ulcer
     Dosage: 250 MILLIGRAM, BID
     Route: 048
     Dates: start: 20210511
  36. CLARITHROMYCIN [Concomitant]
     Active Substance: CLARITHROMYCIN
     Indication: Gastroduodenal ulcer
     Dosage: 500 MILLIGRAM, BID
     Route: 048
     Dates: start: 20210511
  37. METRONIDAZOLE [Concomitant]
     Active Substance: METRONIDAZOLE
     Indication: Gastroduodenal ulcer
     Dosage: 500 MILLIGRAM, BID
     Route: 048
     Dates: start: 20210511
  38. QUETIAPINE [Concomitant]
     Active Substance: QUETIAPINE
     Indication: Behaviour disorder
     Dosage: 12.5 MILLIGRAM, BID
     Route: 048
     Dates: start: 20210511
  39. LOSARTAN [Concomitant]
     Active Substance: LOSARTAN
     Indication: Product used for unknown indication
     Dosage: 100 MILLIGRAM, QD
     Route: 048
     Dates: start: 20210511
  40. MICONAZOLE [Concomitant]
     Active Substance: MICONAZOLE
     Indication: Rash
     Dosage: 1 OZ, BID
     Route: 061
     Dates: start: 20210511

REACTIONS (4)
  - Encephalopathy [Fatal]
  - Dementia [Fatal]
  - Upper gastrointestinal haemorrhage [Unknown]
  - Duodenal ulcer [Recovered/Resolved]

NARRATIVE: CASE EVENT DATE: 20190918
